FAERS Safety Report 10442537 (Version 1)
Quarter: 2014Q3

REPORT INFORMATION
  Report Type: Spontaneous
  Country: JP (occurrence: JP)
  Receive Date: 20140909
  Receipt Date: 20140909
  Transmission Date: 20150326
  Serious: No
  Sender: FDA-Public Use
  Company Number: PHHY2014JP111743

PATIENT
  Age: 47 Year
  Sex: Male

DRUGS (4)
  1. DASATINIB [Suspect]
     Active Substance: DASATINIB
     Dosage: UNK UKN, UNK
  2. INTERFERON ALFA NOS [Suspect]
     Active Substance: INTERFERON ALFA-2A OR INTERFERON ALFA-2B
     Dosage: UNK UKN, UNK
  3. GLIVEC [Suspect]
     Active Substance: IMATINIB MESYLATE
     Indication: CHRONIC MYELOID LEUKAEMIA
     Dosage: UNK UKN, UNK
  4. TASIGNA [Suspect]
     Active Substance: NILOTINIB
     Indication: CHRONIC MYELOID LEUKAEMIA
     Dosage: UNK UKN, UNK

REACTIONS (1)
  - Treatment failure [Unknown]
